FAERS Safety Report 8490162-1 (Version None)
Quarter: 2012Q3

REPORT INFORMATION
  Report Type: 
  Country: None (occurrence: None)
  Receive Date: 20120705
  Receipt Date: 20120625
  Transmission Date: 20120928
  Serious: Yes (Hospitalization)
  Sender: FDA-Public Use
  Company Number: US-CELGENEUS-163-21880-12063577

PATIENT
  Sex: Male
  Weight: 79.904 kg

DRUGS (9)
  1. PHOSLO [Concomitant]
     Route: 065
  2. RENAL CAPSULE [Concomitant]
     Route: 065
  3. REVLIMID [Suspect]
     Indication: MULTIPLE MYELOMA
     Dosage: 10 MILLIGRAM
     Route: 048
     Dates: start: 20100301, end: 20100101
  4. REVLIMID [Suspect]
     Dosage: 5 MILLIGRAM
     Route: 048
     Dates: start: 20100608, end: 20110901
  5. REVLIMID [Suspect]
     Dosage: 5 MILLIGRAM
     Route: 048
     Dates: start: 20120620
  6. DEXAMETHASONE SODIUM PHOSPHATE [Concomitant]
     Route: 065
  7. PEPCID [Concomitant]
     Route: 065
  8. PROCHLORPERAZINE [Concomitant]
     Route: 065
  9. ATIVAN [Concomitant]
     Route: 065

REACTIONS (1)
  - CARDIAC DISORDER [None]
